FAERS Safety Report 13917390 (Version 3)
Quarter: 2017Q3

REPORT INFORMATION
  Report Type: Spontaneous
  Country: PH (occurrence: PH)
  Receive Date: 20170829
  Receipt Date: 20170918
  Transmission Date: 20171127
  Serious: Yes (Hospitalization, Other)
  Sender: FDA-Public Use
  Company Number: PH-GLAXOSMITHKLINE-PH2017GSK130956

PATIENT
  Age: 4 Year
  Sex: Female

DRUGS (1)
  1. VENTOLIN [Suspect]
     Active Substance: ALBUTEROL SULFATE
     Indication: COUGH
     Dosage: UNK, TID
     Route: 048
     Dates: start: 20170814, end: 20170823

REACTIONS (8)
  - Pyrexia [Recovered/Resolved]
  - Platelet count decreased [Recovered/Resolved]
  - Sepsis [Unknown]
  - Vomiting [Unknown]
  - Liquid product physical issue [Unknown]
  - Product quality issue [Unknown]
  - Urinary tract infection bacterial [Unknown]
  - Abdominal pain upper [Not Recovered/Not Resolved]
